FAERS Safety Report 20394157 (Version 3)
Quarter: 2022Q3

REPORT INFORMATION
  Report Type: Spontaneous
  Country: US (occurrence: US)
  Receive Date: 20220129
  Receipt Date: 20220727
  Transmission Date: 20221027
  Serious: Yes (Hospitalization)
  Sender: FDA-Public Use
  Company Number: US-BAYER-2022A013868

PATIENT
  Age: 39 Year
  Sex: Male

DRUGS (1)
  1. XARELTO [Suspect]
     Active Substance: RIVAROXABAN
     Indication: Deep vein thrombosis
     Dosage: UNK
     Route: 048

REACTIONS (3)
  - Eosinophilic pleural effusion [Recovered/Resolved]
  - Deep vein thrombosis [Unknown]
  - Eosinophilia [Unknown]
